FAERS Safety Report 12878751 (Version 1)
Quarter: 2016Q4

REPORT INFORMATION
  Report Type: Spontaneous
  Country: US (occurrence: US)
  Receive Date: 20161024
  Receipt Date: 20161024
  Transmission Date: 20170207
  Serious: Yes (Hospitalization, Other)
  Sender: FDA-Public Use
  Company Number: US-REGENERON PHARMACEUTICALS, INC.-2016-22774

PATIENT

DRUGS (2)
  1. EYLEA [Suspect]
     Active Substance: AFLIBERCEPT
     Indication: AGE-RELATED MACULAR DEGENERATION
     Dosage: UNK, RIGHT EYE
     Route: 031
     Dates: start: 201211, end: 20140807
  2. EYLEA [Suspect]
     Active Substance: AFLIBERCEPT
     Indication: MACULAR DEGENERATION

REACTIONS (4)
  - Hip arthroplasty [Unknown]
  - Drug dose omission [Unknown]
  - Ill-defined disorder [Unknown]
  - Rehabilitation therapy [Unknown]
